FAERS Safety Report 6365937-5 (Version None)
Quarter: 2009Q3

REPORT INFORMATION
  Report Type: 
  Country: None (occurrence: None)
  Receive Date: 20090919
  Receipt Date: 20090828
  Transmission Date: 20100115
  Serious: No
  Sender: FDA-Public Use
  Company Number: US-ABBOTT-09P-163-0594128-00

PATIENT
  Sex: Female
  Weight: 95.794 kg

DRUGS (3)
  1. HUMIRA [Suspect]
     Indication: CROHN'S DISEASE
     Route: 058
     Dates: start: 20090702
  2. SYNTHROID [Concomitant]
     Indication: HYPOTHYROIDISM
     Dosage: NOT DOCUMENTED
  3. PAXIL [Concomitant]
     Indication: DEPRESSION
     Dosage: NOT DOCUMENTED

REACTIONS (1)
  - TENDONITIS [None]
